FAERS Safety Report 9800125 (Version 1)
Quarter: 2014Q1

REPORT INFORMATION
  Report Type: Spontaneous
  Country: US (occurrence: US)
  Receive Date: 20140106
  Receipt Date: 20140106
  Transmission Date: 20141002
  Serious: No
  Sender: FDA-Public Use
  Company Number: US-TARO-2012P1065771

PATIENT
  Sex: Female

DRUGS (1)
  1. HYDROCORTISONE CREAM USP 2.5% [Suspect]
     Route: 054

REACTIONS (2)
  - Burning sensation [Recovered/Resolved]
  - Pruritus [Recovered/Resolved]
